FAERS Safety Report 6974099-2 (Version None)
Quarter: 2010Q3

REPORT INFORMATION
  Report Type: 
  Country: None (occurrence: None)
  Receive Date: 20100909
  Receipt Date: 20100831
  Transmission Date: 20110219
  Serious: No
  Sender: FDA-Public Use
  Company Number: US-B.I. PHARMACEUTICALS,INC./RIDGEFIELD-2010-BP-09910BP

PATIENT
  Sex: Female

DRUGS (2)
  1. ZANTAC 75 [Suspect]
     Dates: start: 20100801
  2. ZANTAC 75 [Suspect]
     Dates: start: 20100801, end: 20100801

REACTIONS (2)
  - CHROMATURIA [None]
  - URINE ABNORMALITY [None]
